FAERS Safety Report 23289158 (Version 2)
Quarter: 2023Q4

REPORT INFORMATION
  Report Type: Spontaneous
  Country: JP (occurrence: JP)
  Receive Date: 20231212
  Receipt Date: 20231220
  Transmission Date: 20240110
  Serious: Yes (Hospitalization, Congenital Anomaly, Other)
  Sender: FDA-Public Use
  Company Number: JP-GUERBETG_JAPAN-JP-20230098

PATIENT
  Sex: Female
  Weight: 2.8 kg

DRUGS (1)
  1. LIPIODOL [Suspect]
     Active Substance: ETHIODIZED OIL
     Indication: Hysterosalpingogram
     Route: 064
     Dates: start: 202203, end: 202203

REACTIONS (2)
  - Goitre [Recovering/Resolving]
  - Respiratory disorder neonatal [Recovering/Resolving]
